FAERS Safety Report 9621085 (Version 4)
Quarter: 2013Q4

REPORT INFORMATION
  Report Type: Spontaneous
  Country: US (occurrence: US)
  Receive Date: 20131015
  Receipt Date: 20131206
  Transmission Date: 20140711
  Serious: Yes (Other)
  Sender: FDA-Public Use
  Company Number: US-ASTELLAS-2013US010738

PATIENT
  Age: 71 Year
  Sex: Male

DRUGS (3)
  1. XTANDI [Suspect]
     Indication: PROSTATE CANCER
     Dosage: 160 MG, UID/QD
     Route: 048
     Dates: start: 20130617
  2. XTANDI [Suspect]
     Dosage: 80 MG, BID
     Route: 048
     Dates: start: 2013
  3. LUPRON [Suspect]
     Indication: PRODUCT USED FOR UNKNOWN INDICATION
     Dosage: UNK, EVERY 3 MONTHS
     Route: 065

REACTIONS (7)
  - Incorrect dose administered [Unknown]
  - Abdominal distension [Unknown]
  - Decreased appetite [Unknown]
  - Hot flush [Unknown]
  - Chest discomfort [Unknown]
  - Abdominal pain upper [Unknown]
  - Nausea [Unknown]
